FAERS Safety Report 20984042 (Version 3)
Quarter: 2022Q3

REPORT INFORMATION
  Report Type: Spontaneous
  Country: JP (occurrence: JP)
  Receive Date: 20220621
  Receipt Date: 20220727
  Transmission Date: 20221027
  Serious: Yes (Hospitalization, Other)
  Sender: FDA-Public Use
  Company Number: JP-BRISTOL-MYERS SQUIBB COMPANY-BMS-2018-119982

PATIENT
  Age: 64 Year
  Sex: Male

DRUGS (7)
  1. YERVOY [Suspect]
     Active Substance: IPILIMUMAB
     Indication: Malignant melanoma
     Dosage: 150 MG, Q3W
     Route: 041
     Dates: start: 20181122, end: 20190129
  2. YERVOY [Suspect]
     Active Substance: IPILIMUMAB
     Dosage: 150 MILLIGRAM, Q3WK
     Route: 041
     Dates: start: 20190129, end: 20190129
  3. YERVOY [Suspect]
     Active Substance: IPILIMUMAB
     Dosage: 90 MILLIGRAM/SQ. METER
     Route: 065
  4. OPDIVO [Suspect]
     Active Substance: NIVOLUMAB
     Indication: Malignant melanoma
     Dosage: 80 MG, Q3W
     Route: 041
     Dates: start: 20181122, end: 20190129
  5. OPDIVO [Suspect]
     Active Substance: NIVOLUMAB
     Dosage: 80 MILLIGRAM, Q3WK
     Route: 041
     Dates: start: 20190108, end: 20190129
  6. OPDIVO [Suspect]
     Active Substance: NIVOLUMAB
     Dosage: 240 MILLIGRAM
     Route: 041
  7. OPDIVO [Suspect]
     Active Substance: NIVOLUMAB
     Dosage: UNK, Q2W
     Route: 041

REACTIONS (2)
  - Polyneuropathy [Unknown]
  - Pruritus [Recovered/Resolved]

NARRATIVE: CASE EVENT DATE: 20181213
